FAERS Safety Report 23272138 (Version 1)
Quarter: 2023Q4

REPORT INFORMATION
  Report Type: 
  Country: US (occurrence: US)
  Receive Date: 20231207
  Receipt Date: 20231207
  Transmission Date: 20240110
  Serious: Yes (Life-Threatening)
  Sender: FDA-Public Use
  Company Number: US-C B Fleet Co Inc-202312-US-003692

PATIENT
  Age: 2 Month
  Sex: Male

DRUGS (1)
  1. LITTLE REMEDIES GAS RELIEF DROPS [Suspect]
     Active Substance: DIMETHICONE
     Indication: Flatulence
     Dosage: UNKNOWN DOSE
     Route: 048

REACTIONS (3)
  - Salivary hypersecretion [Recovered/Resolved]
  - Dyspnoea [Recovered/Resolved]
  - Choking [Recovered/Resolved]
